FAERS Safety Report 23036317 (Version 3)
Quarter: 2024Q2

REPORT INFORMATION
  Report Type: Report from Study
  Country: CA (occurrence: CA)
  Receive Date: 20231006
  Receipt Date: 20240402
  Transmission Date: 20240716
  Serious: Yes (Other)
  Sender: FDA-Public Use
  Company Number: CA-JNJFOC-20231007035

PATIENT
  Age: 61 Year
  Sex: Female
  Weight: 112 kg

DRUGS (2)
  1. REMICADE [Suspect]
     Active Substance: INFLIXIMAB
     Indication: Crohn^s disease
     Route: 041
     Dates: start: 2013
  2. REMICADE [Suspect]
     Active Substance: INFLIXIMAB
     Indication: Ankylosing spondylitis

REACTIONS (6)
  - Pneumonia [Not Recovered/Not Resolved]
  - Crohn^s disease [Unknown]
  - Ankylosing spondylitis [Unknown]
  - Bronchitis [Unknown]
  - SARS-CoV-2 test positive [Not Recovered/Not Resolved]
  - Off label use [Unknown]

NARRATIVE: CASE EVENT DATE: 20230928
